FAERS Safety Report 5221819-3 (Version None)
Quarter: 2007Q1

REPORT INFORMATION
  Report Type: 
  Country: None (occurrence: None)
  Receive Date: 20070126
  Receipt Date: 20070126
  Transmission Date: 20070707
  Serious: Yes (Hospitalization)
  Sender: FDA-Public Use
  Company Number: None

PATIENT
  Sex: Female
  Weight: 62 kg

DRUGS (6)
  1. IRINOTECAN HCL [Suspect]
     Indication: OESOPHAGEAL CANCER METASTATIC
     Dosage: 50 MG IV
     Dates: start: 20061127, end: 20061206
  2. CISPLATIN [Suspect]
     Indication: OESOPHAGEAL CANCER METASTATIC
     Dosage: 83MG IV
     Route: 042
     Dates: start: 20061129, end: 20061206
  3. DOCETAXEL [Suspect]
     Indication: OESOPHAGEAL CANCER METASTATIC
     Dosage: 37MG IV
     Route: 042
     Dates: start: 20061227, end: 20070103
  4. AVASTIN [Suspect]
     Indication: OESOPHAGEAL CANCER METASTATIC
     Dosage: 653MG Q3WKS IV
     Route: 042
     Dates: start: 20061129, end: 20061227
  5. DOCETAXEL [Suspect]
     Indication: OESOPHAGEAL CANCER METASTATIC
     Dosage: 50MG IV
     Route: 042
     Dates: start: 20061129, end: 20061206
  6. IRINOTECAN HCL [Suspect]
     Indication: OESOPHAGEAL CANCER METASTATIC
     Dosage: 83MG IV
     Route: 042
     Dates: start: 20061129, end: 20061206

REACTIONS (9)
  - DIARRHOEA [None]
  - HAEMATEMESIS [None]
  - HAEMATOCRIT DECREASED [None]
  - IMPAIRED GASTRIC EMPTYING [None]
  - NAUSEA [None]
  - OESOPHAGEAL DISORDER [None]
  - REFUSAL OF TREATMENT BY PATIENT [None]
  - THROMBOSIS [None]
  - VOMITING [None]
